FAERS Safety Report 21305426 (Version 1)
Quarter: 2022Q3

REPORT INFORMATION
  Report Type: Spontaneous
  Country: IN (occurrence: IN)
  Receive Date: 20220908
  Receipt Date: 20220908
  Transmission Date: 20221026
  Serious: Yes (Hospitalization)
  Sender: FDA-Public Use
  Company Number: IN-STRIDES ARCOLAB LIMITED-2022SP011289

PATIENT
  Age: 27 Year
  Sex: Male

DRUGS (2)
  1. AMLODIPINE [Suspect]
     Active Substance: AMLODIPINE BESYLATE
     Indication: Product used for unknown indication
     Dosage: 60 DOSAGE FORM, 60 TABLETS OF 10 MG
     Route: 048
  2. BISOPROLOL [Suspect]
     Active Substance: BISOPROLOL
     Indication: Product used for unknown indication
     Dosage: 30 DOSAGE FORM, 30 TABLETS OF 15 MG
     Route: 048

REACTIONS (3)
  - Drug abuse [Unknown]
  - Hypotension [Recovered/Resolved]
  - Overdose [Unknown]
